FAERS Safety Report 5310047-9 (Version None)
Quarter: 2007Q2

REPORT INFORMATION
  Report Type: 
  Country: None (occurrence: None)
  Receive Date: 20070427
  Receipt Date: 20070418
  Transmission Date: 20071010
  Serious: Yes (Hospitalization, Other)
  Sender: FDA-Public Use
  Company Number: GB-GLAXOSMITHKLINE-B0463588A

PATIENT
  Sex: Female

DRUGS (3)
  1. COMBIVIR [Suspect]
     Indication: HIV INFECTION
     Route: 048
     Dates: start: 19991109
  2. KALETRA [Suspect]
     Indication: HIV INFECTION
     Dosage: 2TAB TWICE PER DAY
     Dates: start: 20060126
  3. EFAVIRENZ [Concomitant]
     Indication: HIV INFECTION
     Dates: start: 19991109, end: 20060126

REACTIONS (2)
  - DRUG EXPOSURE DURING PREGNANCY [None]
  - PERICARDITIS [None]
